FAERS Safety Report 7215342-4 (Version None)
Quarter: 2011Q1

REPORT INFORMATION
  Report Type: 
  Country: None (occurrence: None)
  Receive Date: 20110104
  Receipt Date: 20110104
  Transmission Date: 20110831
  Serious: Yes (Hospitalization)
  Sender: FDA-Public Use
  Company Number: None

PATIENT
  Sex: Female
  Weight: 113.3993 kg

DRUGS (2)
  1. NORDITROPIN [Suspect]
     Indication: GROWTH HORMONE DEFICIENCY
     Dosage: 0.55MG QD SQ
     Route: 058
     Dates: end: 20080101
  2. SEE IMAGE [Concomitant]

REACTIONS (3)
  - CYSTITIS [None]
  - NEPHROLITHIASIS [None]
  - URINARY TRACT INFECTION [None]
